FAERS Safety Report 6859734-1 (Version None)
Quarter: 2010Q3

REPORT INFORMATION
  Report Type: 
  Country: None (occurrence: None)
  Receive Date: 20100720
  Receipt Date: 20100712
  Transmission Date: 20110219
  Serious: No
  Sender: FDA-Public Use
  Company Number: US-BIOGENIDEC-2010BI023679

PATIENT
  Age: 54 Year
  Sex: Male
  Weight: 54 kg

DRUGS (2)
  1. TYSABRI [Suspect]
     Indication: MULTIPLE SCLEROSIS
     Route: 042
     Dates: start: 20100610
  2. AMPYRA [Concomitant]
     Indication: MULTIPLE SCLEROSIS
     Dates: start: 20100601

REACTIONS (3)
  - ABASIA [None]
  - DYSPHAGIA [None]
  - INFLUENZA LIKE ILLNESS [None]
